FAERS Safety Report 14549780 (Version 1)
Quarter: 2018Q1

REPORT INFORMATION
  Report Type: Spontaneous
  Country: US (occurrence: US)
  Receive Date: 20180219
  Receipt Date: 20180219
  Transmission Date: 20180509
  Serious: Yes (Death)
  Sender: FDA-Public Use
  Company Number: US-ROCHE-2070721

PATIENT
  Sex: Female

DRUGS (15)
  1. NORCO [Concomitant]
     Active Substance: ACETAMINOPHEN\HYDROCODONE BITARTRATE
  2. VARUBI [Concomitant]
     Active Substance: ROLAPITANT
  3. DEXAMETHASON [Concomitant]
     Active Substance: DEXAMETHASONE
  4. PREDNISONE. [Concomitant]
     Active Substance: PREDNISONE
  5. ALECENSA [Suspect]
     Active Substance: ALECTINIB HYDROCHLORIDE
     Indication: LUNG NEOPLASM MALIGNANT
     Dosage: 4 CAPSULES TWICE DAILY
     Route: 048
     Dates: start: 201711
  6. SINGULAIR [Concomitant]
     Active Substance: MONTELUKAST SODIUM
  7. ONDANSETRON [Concomitant]
     Active Substance: ONDANSETRON
  8. ELIQUIS [Concomitant]
     Active Substance: APIXABAN
  9. ADVAIR HFA [Concomitant]
     Active Substance: FLUTICASONE PROPIONATE\SALMETEROL XINAFOATE
  10. COMPOZ [Concomitant]
  11. TESSALON [Concomitant]
     Active Substance: BENZONATATE
  12. LORAZEPAM. [Concomitant]
     Active Substance: LORAZEPAM
  13. OXYCODONE [Concomitant]
     Active Substance: OXYCODONE
  14. WELLBUTRIN [Concomitant]
     Active Substance: BUPROPION HYDROCHLORIDE
  15. FOLIC ACID. [Concomitant]
     Active Substance: FOLIC ACID

REACTIONS (1)
  - Oncologic complication [Fatal]
